FAERS Safety Report 24417268 (Version 2)
Quarter: 2024Q4

REPORT INFORMATION
  Report Type: Spontaneous
  Country: JP (occurrence: JP)
  Receive Date: 20241009
  Receipt Date: 20241101
  Transmission Date: 20250114
  Serious: Yes (Hospitalization)
  Sender: EISAI
  Company Number: JP-Eisai-202408447_LEN-TMC_P_1

PATIENT
  Age: 72 Year
  Sex: Male

DRUGS (1)
  1. LENVIMA [Suspect]
     Active Substance: LENVATINIB
     Indication: Thymic carcinoma
     Dosage: DOSE AND FREQUENCY UNKNOWN
     Route: 048
     Dates: start: 20240712, end: 20240720

REACTIONS (1)
  - Myocarditis [Not Recovered/Not Resolved]

NARRATIVE: CASE EVENT DATE: 20240721
